FAERS Safety Report 18929103 (Version 2)
Quarter: 2021Q2

REPORT INFORMATION
  Report Type: Spontaneous
  Country: BR (occurrence: BR)
  Receive Date: 20210223
  Receipt Date: 20210402
  Transmission Date: 20210717
  Serious: Yes (Other)
  Sender: FDA-Public Use
  Company Number: BR-ASTRAZENECA-2021A068754

PATIENT
  Age: 91 Year
  Sex: Female

DRUGS (4)
  1. BRILINTA [Suspect]
     Active Substance: TICAGRELOR
     Dosage: DAILY
     Route: 048
  2. ASTRAZENECA COVID?19 VACCINE [Suspect]
     Active Substance: AZD-1222
     Route: 030
     Dates: start: 20210204
  3. CONCARDIO [Concomitant]
     Active Substance: BISOPROLOL FUMARATE
  4. ATORVASTATIN [Concomitant]
     Active Substance: ATORVASTATIN

REACTIONS (17)
  - Fatigue [Unknown]
  - Neck pain [Unknown]
  - Intestinal haemorrhage [Recovered/Resolved]
  - Hypertension [Not Recovered/Not Resolved]
  - Pneumonitis [Not Recovered/Not Resolved]
  - Hyperglycaemia [Not Recovered/Not Resolved]
  - Ill-defined disorder [Unknown]
  - Wheezing [Not Recovered/Not Resolved]
  - Pulmonary oedema [Not Recovered/Not Resolved]
  - Urinary tract infection [Unknown]
  - Rash [Unknown]
  - Skin warm [Unknown]
  - Dementia [Unknown]
  - Hypotension [Not Recovered/Not Resolved]
  - Pyrexia [Recovered/Resolved]
  - Somnolence [Unknown]
  - Pollakiuria [Unknown]

NARRATIVE: CASE EVENT DATE: 202102
